FAERS Safety Report 7361451-9 (Version None)
Quarter: 2011Q1

REPORT INFORMATION
  Report Type: 
  Country: None (occurrence: None)
  Receive Date: 20110310
  Receipt Date: 20110228
  Transmission Date: 20110831
  Serious: Yes (Hospitalization)
  Sender: FDA-Public Use
  Company Number: 015893

PATIENT
  Sex: Female

DRUGS (5)
  1. ASPIRIN /01428701/ [Concomitant]
  2. PRENATAL VITAMINS /01549301/ [Concomitant]
  3. FOLIC ACID [Concomitant]
  4. LACOSAMIDE [Suspect]
     Indication: CONVULSION
     Dosage: (200 MG BID ORAL)
     Route: 048
     Dates: start: 20090101
  5. LAMOTRIGINE [Concomitant]

REACTIONS (8)
  - NAUSEA [None]
  - DRUG EXPOSURE DURING PREGNANCY [None]
  - HEADACHE [None]
  - DYSPEPSIA [None]
  - CARDIAC ARREST [None]
  - CONVULSION [None]
  - HEART RATE INCREASED [None]
  - TREATMENT NONCOMPLIANCE [None]
